FAERS Safety Report 4885575-0 (Version None)
Quarter: 2006Q1

REPORT INFORMATION
  Report Type: 
  Country: None (occurrence: None)
  Receive Date: 20060119
  Receipt Date: 20050718
  Transmission Date: 20060701
  Serious: Yes (Hospitalization)
  Sender: FDA-Public Use
  Company Number: US-MERCK-0507USA02860

PATIENT
  Age: 74 Year
  Sex: Female
  Weight: 58 kg

DRUGS (5)
  1. VIOXX [Suspect]
     Indication: INTERVERTEBRAL DISC DISORDER
     Route: 048
     Dates: start: 19990101, end: 20040930
  2. [THERAPY UNSPECIFIED] [Concomitant]
     Route: 065
  3. ALLEGRA [Concomitant]
     Route: 065
  4. FOSAMAX [Concomitant]
     Route: 065
  5. DIOVAN [Concomitant]
     Route: 065

REACTIONS (2)
  - CARDIAC ARREST [None]
  - MYOCARDIAL INFARCTION [None]
